FAERS Safety Report 8769658 (Version 1)
Quarter: 2012Q4

REPORT INFORMATION
  Report Type: 
  Country: NL (occurrence: NL)
  Receive Date: 20120904
  Receipt Date: 20120904
  Transmission Date: 20130627
  Serious: Yes (Life-Threatening, Congenital Anomaly, Other)
  Sender: FDA-Public Use
  Company Number: NL-PFIZER INC-2012216732

PATIENT
  Sex: Female
  Weight: 3 kg

DRUGS (3)
  1. ALPRAZOLAM [Suspect]
     Indication: SCHIZOPHRENIA
     Dosage: UNK
     Route: 064
     Dates: start: 2012
  2. OXAZEPAM [Suspect]
     Indication: SCHIZOPHRENIA
     Dosage: UNK
     Route: 064
     Dates: start: 2012
  3. FLUOXETINE [Suspect]
     Indication: SCHIZOPHRENIA
     Dosage: UNK
     Route: 064
     Dates: start: 2012

REACTIONS (15)
  - Maternal exposure timing unspecified [Recovered/Resolved]
  - Neonatal asphyxia [Recovered/Resolved]
  - Left ventricular dysfunction [Recovered/Resolved]
  - Respiratory failure [Recovered/Resolved]
  - Stridor [Recovered/Resolved]
  - Lactic acidosis [Recovered/Resolved]
  - Cardiovascular insufficiency [Recovered/Resolved]
  - Hyperglycaemia [Recovered/Resolved]
  - Hypokalaemia [Recovered/Resolved]
  - Urinary retention [Recovered/Resolved]
  - Anaemia [Recovered/Resolved]
  - Hepatic haemorrhage [Recovered/Resolved]
  - Disseminated intravascular coagulation in newborn [Recovered/Resolved]
  - Infection [Recovered/Resolved]
  - Drug withdrawal syndrome neonatal [Recovered/Resolved]
